FAERS Safety Report 5912790-7 (Version None)
Quarter: 2008Q4

REPORT INFORMATION
  Report Type: 
  Country: None (occurrence: None)
  Receive Date: 20081008
  Receipt Date: 20080617
  Transmission Date: 20090506
  Serious: No
  Sender: FDA-Public Use
  Company Number: US-ABBOTT-08P-163-0457744-00

PATIENT
  Sex: Male

DRUGS (6)
  1. DEPAKOTE [Suspect]
     Indication: DRUG USE FOR UNKNOWN INDICATION
     Route: 048
     Dates: start: 19990101
  2. LISINOPRIL [Concomitant]
     Indication: HYPERTENSION
     Route: 048
  3. AMLODIPINE [Concomitant]
     Indication: HYPERTENSION
     Route: 048
  4. FLUOXETINE [Concomitant]
     Indication: ANTIDEPRESSANT THERAPY
     Route: 048
  5. LIBRAX [Concomitant]
     Indication: GASTROINTESTINAL DISORDER
     Route: 048
  6. LIBRAX [Concomitant]

REACTIONS (5)
  - DIZZINESS [None]
  - DRUG DOSE OMISSION [None]
  - FLUSHING [None]
  - HEADACHE [None]
  - HYPOAESTHESIA [None]
